FAERS Safety Report 13911934 (Version 1)
Quarter: 2017Q3

REPORT INFORMATION
  Report Type: Spontaneous
  Country: US (occurrence: US)
  Receive Date: 20170828
  Receipt Date: 20170828
  Transmission Date: 20171127
  Serious: No
  Sender: FDA-Public Use
  Company Number: US-ROCHE-GNE320751

PATIENT
  Age: 3 Year
  Sex: Male

DRUGS (1)
  1. NUTROPIN AQ [Suspect]
     Active Substance: SOMATROPIN
     Indication: HYPOGLYCAEMIA
     Dosage: 0.06 MG, QD
     Route: 058
     Dates: start: 20110619

REACTIONS (3)
  - Hypersomnia [Not Recovered/Not Resolved]
  - Lethargy [None]
  - Hypophagia [None]

NARRATIVE: CASE EVENT DATE: 20110624
